FAERS Safety Report 16241963 (Version 1)
Quarter: 2019Q2

REPORT INFORMATION
  Report Type: Report from Study
  Country: FR (occurrence: FR)
  Receive Date: 20190426
  Receipt Date: 20190426
  Transmission Date: 20190711
  Serious: No
  Sender: FDA-Public Use
  Company Number: FR-CELGENEUS-FRA-20190401071

PATIENT
  Age: 7 Decade
  Sex: Female
  Weight: 65 kg

DRUGS (1)
  1. OTEZLA [Suspect]
     Active Substance: APREMILAST
     Indication: PSORIASIS
     Route: 048
     Dates: start: 201703, end: 201804

REACTIONS (1)
  - Gastrointestinal disorder [Recovering/Resolving]
